FAERS Safety Report 11446263 (Version 1)
Quarter: 2015Q3

REPORT INFORMATION
  Report Type: Spontaneous
  Country: US (occurrence: US)
  Receive Date: 20150831
  Receipt Date: 20150831
  Transmission Date: 20151125
  Serious: No
  Sender: FDA-Public Use
  Company Number: US-ELI_LILLY_AND_COMPANY-US200809004955

PATIENT
  Sex: Male

DRUGS (2)
  1. CYMBALTA [Suspect]
     Active Substance: DULOXETINE HYDROCHLORIDE
     Dosage: 30 MG, 2/D
     Dates: start: 200802, end: 200805
  2. CYMBALTA [Suspect]
     Active Substance: DULOXETINE HYDROCHLORIDE
     Dosage: 30 MG, UNK
     Dates: start: 20080730, end: 20080822

REACTIONS (13)
  - Panic attack [Unknown]
  - Suicidal ideation [Recovered/Resolved]
  - Depressed mood [Unknown]
  - Somnambulism [Unknown]
  - Dizziness [Unknown]
  - Fatigue [Unknown]
  - Urinary incontinence [Unknown]
  - Feeling abnormal [Unknown]
  - Adverse event [Unknown]
  - Job dissatisfaction [Unknown]
  - Urine odour abnormal [Unknown]
  - Withdrawal syndrome [Unknown]
  - Insomnia [Unknown]
